FAERS Safety Report 5185497-4 (Version None)
Quarter: 2006Q4

REPORT INFORMATION
  Report Type: 
  Country: None (occurrence: None)
  Receive Date: 20061220
  Receipt Date: 20060731
  Transmission Date: 20070319
  Serious: No
  Sender: FDA-Public Use
  Company Number: US-GLAXOSMITHKLINE-A0614096A

PATIENT
  Age: 40 Year
  Sex: Female

DRUGS (2)
  1. NICODERM CQ [Suspect]
     Dates: start: 20060709
  2. ALBUTEROL [Concomitant]

REACTIONS (4)
  - ANXIETY [None]
  - APPLICATION SITE ERYTHEMA [None]
  - DYSPNOEA [None]
  - PANIC ATTACK [None]
